FAERS Safety Report 23142459 (Version 1)
Quarter: 2023Q4

REPORT INFORMATION
  Report Type: Spontaneous
  Country: CH (occurrence: CH)
  Receive Date: 20231103
  Receipt Date: 20231103
  Transmission Date: 20240110
  Serious: Yes (Other)
  Sender: FDA-Public Use
  Company Number: CH-STRIDES ARCOLAB LIMITED-2023SP016263

PATIENT
  Age: 40 Year
  Sex: Male

DRUGS (37)
  1. OXYCODONE [Suspect]
     Active Substance: OXYCODONE
     Indication: Anxiety
     Dosage: 900 MILLIGRAM PER DAY
     Route: 048
  2. OXYCODONE [Suspect]
     Active Substance: OXYCODONE
     Indication: Cancer pain
  3. OXYCODONE [Suspect]
     Active Substance: OXYCODONE
     Indication: Abdominal pain
  4. OXYCODONE [Suspect]
     Active Substance: OXYCODONE
     Indication: Pain
  5. FENTANYL [Suspect]
     Active Substance: FENTANYL\FENTANYL CITRATE
     Indication: Cancer pain
     Dosage: 120 MICROGRAM PER 1 HOUR, INTRAVENOUS INFUSION,  BASAL RATE; IV PUMP INFUSION
     Route: 042
  6. FENTANYL [Suspect]
     Active Substance: FENTANYL\FENTANYL CITRATE
     Indication: Abdominal pain
     Dosage: 60 MICROGRAM DEMAND DOSE
     Route: 040
  7. FENTANYL [Suspect]
     Active Substance: FENTANYL\FENTANYL CITRATE
     Indication: Pain
  8. GEMCITABINE [Concomitant]
     Active Substance: GEMCITABINE
     Indication: Gallbladder adenocarcinoma
     Dosage: UNK, CYCLICAL
     Route: 065
  9. GEMCITABINE [Concomitant]
     Active Substance: GEMCITABINE
     Indication: Adenocarcinoma metastatic
  10. OXALIPLATIN [Concomitant]
     Active Substance: OXALIPLATIN
     Indication: Gallbladder adenocarcinoma
     Dosage: UNK, CYCLICAL
     Route: 065
  11. OXALIPLATIN [Concomitant]
     Active Substance: OXALIPLATIN
     Indication: Adenocarcinoma metastatic
  12. DURVALUMAB [Concomitant]
     Active Substance: DURVALUMAB
     Indication: Gallbladder adenocarcinoma
     Dosage: UNK
     Route: 065
  13. DURVALUMAB [Concomitant]
     Active Substance: DURVALUMAB
     Indication: Adenocarcinoma metastatic
  14. KETAMINE [Concomitant]
     Active Substance: KETAMINE
     Indication: Cancer pain
     Dosage: UNK
     Route: 065
  15. KETAMINE [Concomitant]
     Active Substance: KETAMINE
     Indication: Abdominal pain
  16. KETAMINE [Concomitant]
     Active Substance: KETAMINE
     Indication: Pain
  17. MIDAZOLAM [Concomitant]
     Active Substance: MIDAZOLAM
     Indication: Anxiety
     Dosage: UNK,DOSE: UP TO 4MG
     Route: 040
  18. MIDAZOLAM [Concomitant]
     Active Substance: MIDAZOLAM
     Indication: Insomnia
  19. MIDAZOLAM [Concomitant]
     Active Substance: MIDAZOLAM
     Indication: Restlessness
  20. CLONAZEPAM [Concomitant]
     Active Substance: CLONAZEPAM
     Indication: Anxiety
     Dosage: 5 MILLIGRAM PER 24 HOURS
     Route: 042
  21. CLONAZEPAM [Concomitant]
     Active Substance: CLONAZEPAM
     Indication: Insomnia
  22. CLONAZEPAM [Concomitant]
     Active Substance: CLONAZEPAM
     Indication: Restlessness
  23. CLONIDINE [Concomitant]
     Active Substance: CLONIDINE
     Indication: Cancer pain
     Dosage: 75 MICROGRAM PER 12 HOURS
     Route: 048
  24. CLONIDINE [Concomitant]
     Active Substance: CLONIDINE
     Indication: Abdominal pain
  25. CLONIDINE [Concomitant]
     Active Substance: CLONIDINE
     Indication: Pain
  26. TIZANIDINE [Concomitant]
     Active Substance: TIZANIDINE
     Indication: Cancer pain
     Dosage: DOSE: 2MG-2MG-6MG
     Route: 048
  27. TIZANIDINE [Concomitant]
     Active Substance: TIZANIDINE
     Indication: Abdominal pain
  28. TIZANIDINE [Concomitant]
     Active Substance: TIZANIDINE
     Indication: Pain
  29. LORAZEPAM [Concomitant]
     Active Substance: LORAZEPAM
     Indication: Cancer pain
     Dosage: 2.5 MILLIGRAM PER 12 HOURS
     Route: 048
  30. LORAZEPAM [Concomitant]
     Active Substance: LORAZEPAM
     Indication: Abdominal pain
  31. LORAZEPAM [Concomitant]
     Active Substance: LORAZEPAM
     Indication: Pain
  32. BUTYLSCOPOLAMINE [Concomitant]
     Active Substance: BUTYLSCOPOLAMINE
     Indication: Cancer pain
     Dosage: 20 MILLIGRAM PER 4 HOURS
     Route: 042
  33. BUTYLSCOPOLAMINE [Concomitant]
     Active Substance: BUTYLSCOPOLAMINE
     Indication: Abdominal pain
  34. BUTYLSCOPOLAMINE [Concomitant]
     Active Substance: BUTYLSCOPOLAMINE
     Indication: Pain
  35. ACETAMINOPHEN [Concomitant]
     Active Substance: ACETAMINOPHEN
     Indication: Cancer pain
     Dosage: 1000 MILLIGRAM PER 6 HOURS
     Route: 042
  36. ACETAMINOPHEN [Concomitant]
     Active Substance: ACETAMINOPHEN
     Indication: Abdominal pain
  37. ACETAMINOPHEN [Concomitant]
     Active Substance: ACETAMINOPHEN
     Indication: Pain

REACTIONS (3)
  - Bradypnoea [Unknown]
  - Miosis [Unknown]
  - Off label use [Unknown]
